FAERS Safety Report 6089528-9 (Version None)
Quarter: 2009Q1

REPORT INFORMATION
  Report Type: 
  Country: None (occurrence: None)
  Receive Date: 20090220
  Receipt Date: 20090220
  Transmission Date: 20090719
  Serious: Yes (Disabling)
  Sender: FDA-Public Use
  Company Number: None

PATIENT
  Age: 78 Year
  Sex: Female
  Weight: 73.4827 kg

DRUGS (1)
  1. PROPRANOLOL [Suspect]
     Indication: ATRIAL FIBRILLATION
     Dosage: 80 MG QD PO
     Route: 048
     Dates: start: 20090116, end: 20090216

REACTIONS (2)
  - ARTHRALGIA [None]
  - PRODUCT QUALITY ISSUE [None]
